FAERS Safety Report 6219121-6 (Version None)
Quarter: 2009Q2

REPORT INFORMATION
  Report Type: 
  Country: None (occurrence: None)
  Receive Date: 20090609
  Receipt Date: 20090528
  Transmission Date: 20091009
  Serious: Yes (Disabling)
  Sender: FDA-Public Use
  Company Number: GB-JNJFOC-20070203235

PATIENT
  Age: 54 Year
  Sex: Male

DRUGS (11)
  1. REMICADE [Suspect]
     Indication: FISTULA
     Dosage: 2ND INFUSION (2 INFUSIONS TOTAL)
     Route: 042
  2. REMICADE [Suspect]
     Indication: CROHN'S DISEASE
     Dosage: 1ST INFUSION
     Route: 042
  3. MERCAPTOPURINE [Concomitant]
  4. ZOPICLONE [Concomitant]
     Dosage: HS
     Route: 048
  5. METRONIDAZOLE [Concomitant]
     Route: 048
  6. OMEPRAZOLE [Concomitant]
     Route: 048
  7. PREDNISOLONE [Concomitant]
     Route: 048
  8. DIAZEPAM [Concomitant]
     Route: 048
  9. MERCAPTOPURINE [Concomitant]
     Route: 048
  10. ORAMORPH SR [Concomitant]
  11. DOTHIEPIN [Concomitant]
     Dosage: HS
     Route: 048

REACTIONS (9)
  - ABDOMINAL PAIN [None]
  - ANXIETY [None]
  - DEMYELINATION [None]
  - DEPRESSED MOOD [None]
  - DRUG INEFFECTIVE [None]
  - MONONEUROPATHY MULTIPLEX [None]
  - NEUROPATHY PERIPHERAL [None]
  - RECTAL ABSCESS [None]
  - STAPHYLOCOCCAL INFECTION [None]
